FAERS Safety Report 5001402-5 (Version None)
Quarter: 2006Q2

REPORT INFORMATION
  Report Type: 
  Country: None (occurrence: None)
  Receive Date: 20060512
  Receipt Date: 20051004
  Transmission Date: 20061013
  Serious: Yes (Hospitalization, Disabling)
  Sender: FDA-Public Use
  Company Number: US-MERCK-0510USA03235

PATIENT
  Age: 61 Year
  Sex: Female
  Weight: 59 kg

DRUGS (18)
  1. VIOXX [Suspect]
     Indication: BACK PAIN
     Route: 048
     Dates: end: 20030801
  2. VIOXX [Suspect]
     Route: 048
     Dates: start: 20000101, end: 20030201
  3. VIOXX [Suspect]
     Route: 048
     Dates: start: 20000101, end: 20030201
  4. VIOXX [Suspect]
     Route: 048
     Dates: end: 20030801
  5. PREMPRO [Concomitant]
     Route: 048
  6. PREMPRO [Concomitant]
     Route: 048
  7. ATENOLOL [Concomitant]
     Route: 048
  8. NORVASC [Concomitant]
     Route: 048
  9. PAXIL [Concomitant]
     Indication: DEPRESSION
     Route: 048
  10. LIPITOR [Concomitant]
     Route: 048
  11. PRILOSEC [Concomitant]
     Route: 048
  12. XANAX [Concomitant]
     Route: 048
  13. PROVENTIL [Concomitant]
     Route: 055
  14. AZMACORT [Concomitant]
     Route: 055
  15. MIACALCIN [Concomitant]
     Route: 055
  16. ASPIRIN [Concomitant]
     Route: 048
  17. VITAMIN B COMPLEX [Concomitant]
     Route: 048
  18. LEVOXYL [Concomitant]
     Route: 048

REACTIONS (4)
  - AORTIC ARTERIOSCLEROSIS [None]
  - CEREBROVASCULAR ACCIDENT [None]
  - DIPLOPIA [None]
  - HEMIPARESIS [None]
